FAERS Safety Report 20303683 (Version 1)
Quarter: 2022Q1

REPORT INFORMATION
  Report Type: Spontaneous
  Country: TW (occurrence: TW)
  Receive Date: 20220106
  Receipt Date: 20220106
  Transmission Date: 20220424
  Serious: Yes (Death, Other)
  Sender: FDA-Public Use
  Company Number: TW-NOVARTISPH-NVSC2020TW066546

PATIENT
  Age: 61 Year
  Sex: Female

DRUGS (14)
  1. FEMARA [Suspect]
     Active Substance: LETROZOLE
     Indication: Breast cancer
     Dosage: UNK
     Route: 065
     Dates: start: 20170918
  2. FEMARA [Suspect]
     Active Substance: LETROZOLE
     Indication: Hepatic cancer metastatic
  3. AFINITOR [Suspect]
     Active Substance: EVEROLIMUS
     Indication: Breast cancer
     Dosage: UNK
     Route: 065
     Dates: start: 20190418
  4. AFINITOR [Suspect]
     Active Substance: EVEROLIMUS
     Indication: Hepatic cancer metastatic
     Dosage: 5 MG, UNKNOWN
     Route: 065
  5. FASLODEX [Concomitant]
     Active Substance: FULVESTRANT
     Indication: Breast cancer
     Dosage: UNK
     Route: 065
     Dates: start: 20171215
  6. FASLODEX [Concomitant]
     Active Substance: FULVESTRANT
     Indication: Hepatic cancer metastatic
  7. CYCLOPHOSPHAMIDE [Concomitant]
     Active Substance: CYCLOPHOSPHAMIDE
     Indication: Breast cancer
     Dosage: UNK
     Route: 065
     Dates: start: 20180308
  8. CYCLOPHOSPHAMIDE [Concomitant]
     Active Substance: CYCLOPHOSPHAMIDE
     Indication: Hepatic cancer metastatic
  9. IBRANCE [Concomitant]
     Active Substance: PALBOCICLIB
     Indication: Breast cancer
     Dosage: UNK
     Route: 065
     Dates: start: 20180623, end: 20190912
  10. IBRANCE [Concomitant]
     Active Substance: PALBOCICLIB
     Indication: Hepatic cancer metastatic
  11. AROMASIN [Concomitant]
     Active Substance: EXEMESTANE
     Indication: Breast cancer
     Dosage: UNK
     Route: 065
     Dates: start: 20190418, end: 20190912
  12. AROMASIN [Concomitant]
     Active Substance: EXEMESTANE
     Indication: Hepatic cancer metastatic
  13. ERIBULIN [Concomitant]
     Active Substance: ERIBULIN
     Indication: Breast cancer
     Dosage: UNK
     Route: 065
     Dates: start: 20191003
  14. ERIBULIN [Concomitant]
     Active Substance: ERIBULIN
     Indication: Hepatic cancer metastatic

REACTIONS (3)
  - Death [Fatal]
  - Leukopenia [Unknown]
  - Oral discomfort [Unknown]

NARRATIVE: CASE EVENT DATE: 20180705
